FAERS Safety Report 21380313 (Version 1)
Quarter: 2022Q3

REPORT INFORMATION
  Report Type: Spontaneous
  Country: CN (occurrence: CN)
  Receive Date: 20220927
  Receipt Date: 20220927
  Transmission Date: 20221026
  Serious: Yes (Other)
  Sender: FDA-Public Use
  Company Number: CN-UCBSA-2022056281

PATIENT
  Age: 33 Year
  Sex: Female
  Weight: 56 kg

DRUGS (1)
  1. KEPPRA [Suspect]
     Active Substance: LEVETIRACETAM
     Indication: Epilepsy
     Dosage: 1 DOSAGE FORM, 2X/DAY (BID)
     Route: 048
     Dates: start: 20220914, end: 20220915

REACTIONS (4)
  - Mental impairment [Recovered/Resolved]
  - Somnolence [Recovered/Resolved]
  - Asthenia [Recovered/Resolved]
  - Dizziness [Recovered/Resolved]

NARRATIVE: CASE EVENT DATE: 20220915
